FAERS Safety Report 4487859-7 (Version None)
Quarter: 2004Q4

REPORT INFORMATION
  Report Type: 
  Country: None (occurrence: None)
  Receive Date: 20041027
  Receipt Date: 20041027
  Transmission Date: 20050328
  Serious: No
  Sender: FDA-Public Use
  Company Number: None

PATIENT
  Age: 93 Year
  Sex: Female

DRUGS (1)
  1. ALTOPREV [Suspect]
     Indication: HYPERLIPIDAEMIA
     Dosage: 60 MG PO QD
     Route: 048

REACTIONS (1)
  - RHABDOMYOLYSIS [None]
